FAERS Safety Report 8837308 (Version 1)
Quarter: 2012Q4

REPORT INFORMATION
  Report Type: 
  Country: US (occurrence: US)
  Receive Date: 20121012
  Receipt Date: 20121012
  Transmission Date: 20130627
  Serious: Yes (Hospitalization, Other)
  Sender: FDA-Public Use
  Company Number: US-SHIRE-ALL1-2012-04741

PATIENT
  Age: 51 Year
  Sex: Female
  Weight: 61.22 kg

DRUGS (3)
  1. VYVANSE [Suspect]
     Indication: ATTENTION DEFICIT/HYPERACTIVITY DISORDER
     Dosage: 60 mg, 1x/day:qd
     Route: 048
     Dates: start: 20120830, end: 201209
  2. VYVANSE [Suspect]
     Indication: LYME DISEASE
  3. VYVANSE [Suspect]
     Indication: FATIGUE

REACTIONS (7)
  - Loss of consciousness [Recovered/Resolved]
  - Hypotension [Recovering/Resolving]
  - Asthenia [Not Recovered/Not Resolved]
  - Somnolence [Not Recovered/Not Resolved]
  - Nausea [Recovered/Resolved]
  - Irritability [Recovered/Resolved]
  - Drug effect delayed [Recovered/Resolved]
